FAERS Safety Report 14365997 (Version 1)
Quarter: 2018Q1

REPORT INFORMATION
  Report Type: Spontaneous
  Country: TR (occurrence: TR)
  Receive Date: 20180109
  Receipt Date: 20180109
  Transmission Date: 20180509
  Serious: Yes (Other)
  Sender: FDA-Public Use
  Company Number: TR-TEVA-2018-TR-843606

PATIENT
  Age: 36 Year
  Sex: Female
  Weight: 58 kg

DRUGS (4)
  1. HELIPAC TREATMENT PACKAGE (LANSOPRAZOLE INGREDIENT) [Suspect]
     Active Substance: LANSOPRAZOLE
     Dosage: 2000 MILLIGRAM DAILY; AMOXICILLIN 1000 MG TABLET
     Route: 048
     Dates: start: 20171211, end: 20171224
  2. HELIPAC TREATMENT PACKAGE (LANSOPRAZOLE INGREDIENT) [Suspect]
     Active Substance: LANSOPRAZOLE
     Dosage: 60 MILLIGRAM DAILY; LANSOPRAZOLE 30 MG CAPSULE
     Route: 048
     Dates: start: 20171211, end: 20171224
  3. HELIPAC TREATMENT PACKAGE (AMOXICILLIN INGREDIENT) [Suspect]
     Active Substance: AMOXICILLIN
     Dosage: 2000 MILLIGRAM DAILY; AMOXICILLIN 1000 MG TABLET
     Route: 048
     Dates: start: 20171211, end: 20171224
  4. HELIPAC TREATMENT PACKAGE (CLARITHROMYCIN INGREDIENT) [Suspect]
     Active Substance: CLARITHROMYCIN
     Dosage: 1000 MILLIGRAM DAILY; CLARITHROMYCIN 500 MG TABLET
     Route: 048
     Dates: start: 20171211, end: 20171224

REACTIONS (3)
  - Oral discharge [Recovered/Resolved]
  - Vitamin B12 decreased [Recovering/Resolving]
  - Dysgeusia [Recovered/Resolved]

NARRATIVE: CASE EVENT DATE: 20171211
